FAERS Safety Report 5398456-3 (Version None)
Quarter: 2007Q3

REPORT INFORMATION
  Report Type: 
  Country: None (occurrence: None)
  Receive Date: 20070725
  Receipt Date: 20070716
  Transmission Date: 20080115
  Serious: Yes (Other)
  Sender: FDA-Public Use
  Company Number: TPA2007A01123

PATIENT
  Age: 70 Year
  Sex: Female
  Weight: 69.8539 kg

DRUGS (10)
  1. ACTOS [Suspect]
     Indication: TYPE 2 DIABETES MELLITUS
     Dosage: 15 MG, 2 IN 1 D; PER ORAL
     Route: 048
     Dates: start: 20040101
  2. ACTOS [Suspect]
     Indication: TYPE 2 DIABETES MELLITUS
     Dosage: 15 MG, 2 IN 1 D; PER ORAL
     Route: 048
     Dates: start: 20070531
  3. OXYGEN (OXYGEN) [Concomitant]
  4. CLONIDINE [Concomitant]
  5. LISINOPRIL [Concomitant]
  6. NORVASC [Concomitant]
  7. SINGULAIR (MONTELUKAST) (10 MILLIGRAM) [Concomitant]
  8. SPIRIVA [Concomitant]
  9. ALBUTEROL [Concomitant]
  10. LEXAPRO [Concomitant]

REACTIONS (2)
  - ANAEMIA [None]
  - DIABETIC NEPHROPATHY [None]
